FAERS Safety Report 12944379 (Version 1)
Quarter: 2016Q4

REPORT INFORMATION
  Report Type: Spontaneous
  Country: RO (occurrence: RO)
  Receive Date: 20161115
  Receipt Date: 20161115
  Transmission Date: 20170207
  Serious: Yes (Other)
  Sender: FDA-Public Use
  Company Number: RO-ABBVIE-16P-135-1780624-00

PATIENT
  Age: 54 Year
  Sex: Female

DRUGS (3)
  1. VALPROATE SODIUM. [Suspect]
     Active Substance: VALPROATE SODIUM
     Indication: SCHIZOAFFECTIVE DISORDER
     Dosage: GASTRO-RESISTANT TABLET
     Route: 048
  2. CLONAZEPAM. [Suspect]
     Active Substance: CLONAZEPAM
     Indication: SCHIZOAFFECTIVE DISORDER
     Route: 048
  3. OLANZAPINE. [Suspect]
     Active Substance: OLANZAPINE
     Indication: SCHIZOAFFECTIVE DISORDER
     Dosage: ORALLY DISINTEGRATING
     Route: 048

REACTIONS (9)
  - Abnormal behaviour [Unknown]
  - Disturbance in social behaviour [Unknown]
  - Frontotemporal dementia [Unknown]
  - Psychotic disorder [Unknown]
  - Cognitive disorder [Unknown]
  - Delusion [Unknown]
  - Aggression [Unknown]
  - Extrapyramidal disorder [Unknown]
  - Hallucination [Unknown]
